FAERS Safety Report 4615784-7 (Version None)
Quarter: 2005Q2

REPORT INFORMATION
  Report Type: 
  Country: None (occurrence: None)
  Receive Date: 20050310
  Receipt Date: 20041201
  Transmission Date: 20051028
  Serious: Yes (Hospitalization)
  Sender: FDA-Public Use
  Company Number: A03200403676

PATIENT
  Age: 52 Year
  Sex: Female
  Weight: 72.1219 kg

DRUGS (1)
  1. ELOXATIN [Suspect]
     Indication: COLON CANCER
     Dosage: 230 MG Q2W - INTRAVENOUS NOS
     Route: 042
     Dates: start: 20041018, end: 20041018

REACTIONS (1)
  - DYSAESTHESIA PHARYNX [None]
